FAERS Safety Report 4675437-6 (Version None)
Quarter: 2005Q2

REPORT INFORMATION
  Report Type: 
  Country: None (occurrence: None)
  Receive Date: 20050527
  Receipt Date: 20050307
  Transmission Date: 20051028
  Serious: No
  Sender: FDA-Public Use
  Company Number: US-BRISTOL-MYERS SQUIBB COMPANY-12888566

PATIENT
  Age: 24 Year
  Sex: Female
  Weight: 63 kg

DRUGS (3)
  1. ABILIFY [Suspect]
     Indication: EMOTIONAL DISORDER
     Dosage: INITATED 5 MG SEVERAL MONTHS AGO, INCREASED TO 10 MG FOR ONE MONTH, AND THEN INCREASED TO 15 MG.
     Dates: start: 20050201
  2. ATIVAN [Concomitant]
  3. PAXIL CR [Concomitant]

REACTIONS (1)
  - DYSKINESIA [None]
